FAERS Safety Report 9830916 (Version 2)
Quarter: 2014Q1

REPORT INFORMATION
  Report Type: Spontaneous
  Country: BR (occurrence: BR)
  Receive Date: 20140120
  Receipt Date: 20140324
  Transmission Date: 20141002
  Serious: Yes (Hospitalization, Other)
  Sender: FDA-Public Use
  Company Number: BR-ABBVIE-14P-020-1190260-00

PATIENT
  Age: 63 Year
  Sex: Female

DRUGS (12)
  1. HUMIRA [Suspect]
     Indication: RHEUMATOID ARTHRITIS
     Route: 058
     Dates: start: 201401
  2. PREDNISONE [Concomitant]
     Indication: BONE DISORDER
     Route: 048
     Dates: start: 1999
  3. IBUPROFEN [Concomitant]
     Indication: BONE DISORDER
     Dosage: IN THE MORNING
     Route: 048
     Dates: start: 2004
  4. ACETYLSALICYLIC ACID [Concomitant]
     Indication: CARDIOVASCULAR DISORDER
     Dates: start: 2010
  5. NEPROFETA [Concomitant]
     Indication: BONE DISORDER
     Dates: start: 2004
  6. ALENDRONATE [Concomitant]
     Indication: BONE DISORDER
     Route: 048
     Dates: start: 2004
  7. CALCITRIOL [Concomitant]
     Indication: BONE DISORDER
     Dates: start: 2013
  8. HYDROCHLOROTHIAZIDE [Concomitant]
     Indication: HYPERTENSION
     Dosage: IN THE MORNING
     Route: 048
     Dates: start: 2011
  9. INSULIN NPH [Concomitant]
     Indication: DIABETES MELLITUS
     Dosage: 40 IU IN THE MORNING AND 30 IU AT NIGHT
     Dates: start: 2009
  10. SIMVASTATIN [Concomitant]
     Indication: PRODUCT USED FOR UNKNOWN INDICATION
     Dosage: AT NIGHT
     Route: 048
  11. METHOTREXATE [Concomitant]
     Indication: PRODUCT USED FOR UNKNOWN INDICATION
     Route: 048
  12. OMEPRAZOLE [Concomitant]
     Indication: PRODUCT USED FOR UNKNOWN INDICATION
     Route: 048

REACTIONS (7)
  - Hypotension [Recovered/Resolved]
  - Gastrointestinal infection [Recovered/Resolved]
  - Diarrhoea [Recovered/Resolved]
  - Vomiting [Recovered/Resolved]
  - Sepsis [Recovered/Resolved]
  - Anaemia [Not Recovered/Not Resolved]
  - Influenza [Not Recovered/Not Resolved]
